FAERS Safety Report 8227213-5 (Version None)
Quarter: 2012Q1

REPORT INFORMATION
  Report Type: 
  Country: None (occurrence: None)
  Receive Date: 20120322
  Receipt Date: 20120314
  Transmission Date: 20120608
  Serious: Yes (Hospitalization, Other)
  Sender: FDA-Public Use
  Company Number: US-BAYER-2011-098210

PATIENT
  Age: 34 Year
  Sex: Female
  Weight: 98.866 kg

DRUGS (6)
  1. YAZ [Suspect]
     Indication: PREMENSTRUAL SYNDROME
     Dosage: UNK
     Dates: start: 20060101, end: 20080101
  2. CELEXA [Concomitant]
     Dosage: 60 MG, UNK, DAILY
     Route: 048
  3. YAZ [Suspect]
  4. ACIPHEX [Concomitant]
     Dosage: 20 MG DAILY
     Route: 048
  5. PROAIR HFA [Concomitant]
     Dosage: UNK
     Route: 055
     Dates: start: 20090511
  6. ZYRTEC [Concomitant]
     Indication: MULTIPLE ALLERGIES
     Dosage: UNK
     Route: 048
     Dates: start: 20090101

REACTIONS (8)
  - PAIN [None]
  - GALLBLADDER DISORDER [None]
  - SCAR [None]
  - ABDOMINAL PAIN UPPER [None]
  - ADHESION [None]
  - CHOLECYSTITIS CHRONIC [None]
  - INJURY [None]
  - ABDOMINAL ADHESIONS [None]
